APPROVED DRUG PRODUCT: DIUCARDIN
Active Ingredient: HYDROFLUMETHIAZIDE
Strength: 50MG
Dosage Form/Route: TABLET;ORAL
Application: A083383 | Product #001
Applicant: WYETH AYERST LABORATORIES
Approved: Approved Prior to Jan 1, 1982 | RLD: No | RS: No | Type: DISCN